FAERS Safety Report 9568192 (Version 1)
Quarter: 2013Q3

REPORT INFORMATION
  Report Type: Spontaneous
  Country: US (occurrence: US)
  Receive Date: 20130930
  Receipt Date: 20130930
  Transmission Date: 20140515
  Serious: No
  Sender: FDA-Public Use
  Company Number: US-AMGEN-USASP2013056472

PATIENT
  Age: 38 Year
  Sex: Female
  Weight: 81.63 kg

DRUGS (3)
  1. ENBREL [Suspect]
     Indication: PRODUCT USED FOR UNKNOWN INDICATION
     Dosage: 50 MG EVERY THREE DAYS
     Route: 058
  2. ASPIRIN [Concomitant]
     Dosage: 325 MG, UNK
  3. BENADRYL                           /00000402/ [Concomitant]
     Dosage: 25 MG, UNK

REACTIONS (3)
  - Drug effect decreased [Unknown]
  - Pain [Recovered/Resolved]
  - Insomnia [Recovered/Resolved]
